FAERS Safety Report 21560161 (Version 1)
Quarter: 2022Q4

REPORT INFORMATION
  Report Type: Spontaneous
  Country: US (occurrence: US)
  Receive Date: 20221107
  Receipt Date: 20221107
  Transmission Date: 20230113
  Serious: No
  Sender: FDA-Public Use
  Company Number: US-OTSUKA-2021_045508

PATIENT
  Sex: Female

DRUGS (1)
  1. NUEDEXTA [Suspect]
     Active Substance: DEXTROMETHORPHAN HYDROBROMIDE\QUINIDINE SULFATE
     Indication: Product used for unknown indication
     Dosage: (DEXTROMETHORPHAN HYDROBROMIDE 20 MG + QUINIDINE SULFATE 10 MG)
     Route: 048

REACTIONS (2)
  - Dysphagia [Unknown]
  - Retching [Unknown]
